FAERS Safety Report 17581242 (Version 1)
Quarter: 2020Q1

REPORT INFORMATION
  Report Type: Spontaneous
  Country: US (occurrence: US)
  Receive Date: 20200325
  Receipt Date: 20200325
  Transmission Date: 20200409
  Serious: No
  Sender: FDA-Public Use
  Company Number: US-LEO PHARMA-328871

PATIENT
  Age: 73 Year
  Sex: Female
  Weight: 59.64 kg

DRUGS (5)
  1. PROTOPIC [Suspect]
     Active Substance: TACROLIMUS
     Indication: PRURITUS
  2. PROTOPIC [Suspect]
     Active Substance: TACROLIMUS
     Indication: ECZEMA
     Dosage: 1/16 OF AN INCH, TWICE
     Route: 061
     Dates: start: 20200311, end: 20200311
  3. PROTOPIC [Suspect]
     Active Substance: TACROLIMUS
     Indication: BURNING SENSATION
  4. TRYPTOPHANUM [Concomitant]
     Indication: PRODUCT USED FOR UNKNOWN INDICATION
  5. ESTROGEN NOS [Concomitant]
     Active Substance: ESTROGENS
     Indication: PRODUCT USED FOR UNKNOWN INDICATION

REACTIONS (4)
  - Product administered at inappropriate site [Unknown]
  - Burning sensation [Not Recovered/Not Resolved]
  - Condition aggravated [Not Recovered/Not Resolved]
  - Pruritus [Not Recovered/Not Resolved]

NARRATIVE: CASE EVENT DATE: 20200311
